FAERS Safety Report 5878153-8 (Version None)
Quarter: 2008Q3

REPORT INFORMATION
  Report Type: 
  Country: None (occurrence: None)
  Receive Date: 20080910
  Receipt Date: 20080910
  Transmission Date: 20090109
  Serious: Yes (Other)
  Sender: FDA-Public Use
  Company Number: None

PATIENT
  Age: 13 Year
  Sex: Male
  Weight: 72.5755 kg

DRUGS (3)
  1. RISPERIDONE [Suspect]
     Indication: BIPOLAR DISORDER
     Dosage: 1 MG PO QHS
     Route: 048
     Dates: start: 20080501
  2. RISPERIDONE [Suspect]
     Indication: MAJOR DEPRESSION
     Dosage: 1 MG PO QHS
     Route: 048
     Dates: start: 20080501
  3. FLUOXETINE [Concomitant]

REACTIONS (4)
  - AFFECTIVE DISORDER [None]
  - DRUG INEFFECTIVE [None]
  - INSOMNIA [None]
  - THERAPEUTIC RESPONSE UNEXPECTED WITH DRUG SUBSTITUTION [None]
